FAERS Safety Report 19447046 (Version 1)
Quarter: 2021Q2

REPORT INFORMATION
  Report Type: Spontaneous
  Country: US (occurrence: US)
  Receive Date: 20210621
  Receipt Date: 20210621
  Transmission Date: 20210717
  Serious: Yes (Hospitalization)
  Sender: FDA-Public Use
  Company Number: None

PATIENT
  Sex: Male

DRUGS (33)
  1. AMLODIPINE [Concomitant]
     Active Substance: AMLODIPINE BESYLATE
  2. VITAMIN D3 [Concomitant]
     Active Substance: CHOLECALCIFEROL
  3. DOCUSATE SOD [Concomitant]
  4. WARFARIN [Concomitant]
     Active Substance: WARFARIN
  5. AMOX/K CLAV [Concomitant]
     Active Substance: AMOXICILLIN\CLAVULANATE POTASSIUM
  6. CALCITRIOL. [Concomitant]
     Active Substance: CALCITRIOL
  7. PANTOPRAZOLE [Concomitant]
     Active Substance: PANTOPRAZOLE
  8. CARVEDILOL. [Concomitant]
     Active Substance: CARVEDILOL
  9. CLOPIDOGREL [Concomitant]
     Active Substance: CLOPIDOGREL BISULFATE
  10. ISOSORB MONO ER [Concomitant]
     Active Substance: ISOSORBIDE MONONITRATE
  11. POLYETH GLYC NF [Concomitant]
  12. POT CHLORIDE ER [Concomitant]
  13. TRIAMCINOLON CRE [Concomitant]
  14. ESBRIET [Suspect]
     Active Substance: PIRFENIDONE
     Indication: IDIOPATHIC PULMONARY FIBROSIS
     Route: 048
     Dates: start: 20200317
  15. METAMUCIL [Concomitant]
     Active Substance: PLANTAGO SEED
  16. METOLAZONE. [Concomitant]
     Active Substance: METOLAZONE
  17. NITROGLYCERN SUB [Concomitant]
  18. SODIUM CHLOR NEB 3% [Concomitant]
  19. NOVOLOG [Concomitant]
     Active Substance: INSULIN ASPART
  20. ATORVASTATIN [Concomitant]
     Active Substance: ATORVASTATIN
  21. AZITHROMYCIN ANHYDROUS. [Concomitant]
     Active Substance: AZITHROMYCIN ANHYDROUS
  22. BENZONATATE. [Concomitant]
     Active Substance: BENZONATATE
  23. BEVESPI AER [Concomitant]
  24. CEPHALEXIN. [Concomitant]
     Active Substance: CEPHALEXIN
  25. CETIRIZINE [Concomitant]
     Active Substance: CETIRIZINE HYDROCHLORIDE
  26. FENOFIBRATE. [Concomitant]
     Active Substance: FENOFIBRATE
  27. PREDNISONE. [Concomitant]
     Active Substance: PREDNISONE
  28. TAMSULOSIN [Concomitant]
     Active Substance: TAMSULOSIN
  29. BUMETANIDE. [Concomitant]
     Active Substance: BUMETANIDE
  30. FINASTERIDE. [Concomitant]
     Active Substance: FINASTERIDE
  31. GABAPENTIN. [Concomitant]
     Active Substance: GABAPENTIN
  32. TRESIBA FLEX [Concomitant]
  33. VICTOZA [Concomitant]
     Active Substance: LIRAGLUTIDE

REACTIONS (1)
  - Hospitalisation [None]
